FAERS Safety Report 9203788 (Version 1)
Quarter: 2013Q1

REPORT INFORMATION
  Report Type: Spontaneous
  Country: US (occurrence: None)
  Receive Date: 20120709
  Receipt Date: 20120709
  Transmission Date: 20140127
  Serious: No
  Sender: FDA-Public Use
  Company Number: 2012HGS-003552

PATIENT
  Age: 24 Year
  Sex: Male
  Weight: 136.08 kg

DRUGS (7)
  1. BENLYSTA [Suspect]
     Indication: SYSTEMIC LUPUS ERYTHEMATOSUS
     Route: 041
     Dates: start: 20120409
  2. PREDNISONE (PREDNISONE) [Concomitant]
  3. SEROQUEL (QUETIAPINE FUMARATE) [Concomitant]
  4. AZATHIOPRINE  (AZATHIOPRINE) [Concomitant]
  5. CALCIUM (CALCIUM) [Concomitant]
  6. VITAMIN D (ERGOCALCIFEROL) [Concomitant]
  7. COUMADIN (WARFARIN SODIUM) [Concomitant]

REACTIONS (5)
  - Tension [None]
  - Nasal congestion [None]
  - Rhinorrhoea [None]
  - Gastrooesophageal reflux disease [None]
  - Vomiting [None]
